FAERS Safety Report 11175816 (Version 2)
Quarter: 2015Q2

REPORT INFORMATION
  Report Type: Spontaneous
  Country: KE (occurrence: KE)
  Receive Date: 20150609
  Receipt Date: 20150611
  Transmission Date: 20150821
  Serious: Yes (Hospitalization, Other)
  Sender: FDA-Public Use
  Company Number: PHHY2015KE068098

PATIENT
  Age: 19 Year
  Sex: Female

DRUGS (1)
  1. COARTEM [Suspect]
     Active Substance: ARTEMETHER\LUMEFANTRINE
     Indication: MALARIA
     Dosage: ONE (ART 80MG/ BEN 480MG) BID, (1ST WEEK OF MAY)
     Route: 048
     Dates: start: 201505

REACTIONS (3)
  - Foetal death [Recovered/Resolved]
  - Maternal exposure during pregnancy [Unknown]
  - Haemorrhage [Recovered/Resolved]

NARRATIVE: CASE EVENT DATE: 201505
